FAERS Safety Report 4458090-6 (Version None)
Quarter: 2004Q3

REPORT INFORMATION
  Report Type: 
  Country: None (occurrence: None)
  Receive Date: 20040924
  Receipt Date: 20040806
  Transmission Date: 20050211
  Serious: Yes (Disabling)
  Sender: FDA-Public Use
  Company Number: PHEH2004US08515

PATIENT
  Age: 54 Year
  Sex: Male
  Weight: 98 kg

DRUGS (2)
  1. LAMISIL [Suspect]
     Indication: NAIL TINEA
     Dosage: 250 MG, QD
     Route: 048
     Dates: start: 20040524, end: 20040728
  2. LEVOTHYROXINE SODIUM [Concomitant]
     Dosage: .112 MG, QD
     Route: 048
     Dates: start: 20020809

REACTIONS (6)
  - ANOREXIA [None]
  - DYSGEUSIA [None]
  - PHARYNGOLARYNGEAL PAIN [None]
  - STOMATITIS [None]
  - TONGUE DISCOLOURATION [None]
  - WEIGHT DECREASED [None]
